FAERS Safety Report 8585828-9 (Version None)
Quarter: 2012Q3

REPORT INFORMATION
  Report Type: 
  Country: None (occurrence: None)
  Receive Date: 20120810
  Receipt Date: 20120731
  Transmission Date: 20120928
  Serious: Yes (Hospitalization)
  Sender: FDA-Public Use
  Company Number: US-BAYER-2012-046249

PATIENT
  Age: 44 Year
  Sex: Female

DRUGS (9)
  1. MINERALS NOS [Concomitant]
  2. YASMIN [Suspect]
     Dosage: UNK
  3. VICODIN [Concomitant]
  4. SEPTRA [Concomitant]
     Dosage: 1 TABLET EVERY 12 HOURS
  5. FLONASE [Concomitant]
     Dosage: 0.05%2 SPRAYS IN EACH NOSTRIL EVERY DAY
     Route: 045
  6. VITAMIN TAB [Concomitant]
     Dosage: WEEKLY
  7. YAZ [Suspect]
     Dosage: UNK
  8. VITAMIN D [Concomitant]
  9. VITAMIN TAB [Concomitant]

REACTIONS (9)
  - DEEP VEIN THROMBOSIS [None]
  - FEAR [None]
  - QUALITY OF LIFE DECREASED [None]
  - INJURY [None]
  - ANHEDONIA [None]
  - PAIN [None]
  - PULMONARY EMBOLISM [None]
  - ANXIETY [None]
  - EMOTIONAL DISTRESS [None]
